FAERS Safety Report 23480743 (Version 1)
Quarter: 2024Q1

REPORT INFORMATION
  Report Type: Spontaneous
  Country: US (occurrence: US)
  Receive Date: 20240205
  Receipt Date: 20240205
  Transmission Date: 20240409
  Serious: Yes (Life-Threatening, Hospitalization, Other)
  Sender: FDA-Public Use
  Company Number: US-862174955-ML2024-00643

PATIENT
  Age: 68 Year
  Sex: Male

DRUGS (4)
  1. BUPROPION [Suspect]
     Active Substance: BUPROPION
     Indication: Pain prophylaxis
     Dosage: CHRONICALLY USES BUPROPION, FLUOXETINE, AND A FENTANYL PATCH
  2. FLUOXETINE [Suspect]
     Active Substance: FLUOXETINE HYDROCHLORIDE
     Indication: Pain prophylaxis
     Dosage: CHRONICALLY USES BUPROPION, FLUOXETINE, AND A FENTANYL PATCH
  3. FENTANYL [Suspect]
     Active Substance: FENTANYL\FENTANYL CITRATE
     Indication: Pain prophylaxis
     Dosage: CHRONICALLY USES BUPROPION, FLUOXETINE, AND A FENTANYL PATCH
  4. HERBALS\MITRAGYNINE [Suspect]
     Active Substance: HERBALS\MITRAGYNINE
     Indication: Pain prophylaxis

REACTIONS (2)
  - Serotonin syndrome [Recovered/Resolved]
  - Drug interaction [Unknown]
